FAERS Safety Report 6994720-2 (Version None)
Quarter: 2010Q3

REPORT INFORMATION
  Report Type: 
  Country: None (occurrence: None)
  Receive Date: 20100915
  Receipt Date: 20100831
  Transmission Date: 20110219
  Serious: Yes (Hospitalization)
  Sender: FDA-Public Use
  Company Number: 2010SP002290

PATIENT
  Age: 63 Year
  Sex: Female
  Weight: 60.8 kg

DRUGS (5)
  1. ARFORMOTEROL TARTRATE [Suspect]
     Indication: CHRONIC OBSTRUCTIVE PULMONARY DISEASE
     Dosage: 15 UG;BID;INHALATION
     Dates: start: 20100622
  2. PROTONIX [Concomitant]
  3. VERAPAMIL [Concomitant]
  4. AZMACORT [Concomitant]
  5. ALBUTEROL [Concomitant]

REACTIONS (1)
  - DIZZINESS [None]
